FAERS Safety Report 13121542 (Version 1)
Quarter: 2017Q1

REPORT INFORMATION
  Report Type: Spontaneous
  Country: US (occurrence: US)
  Receive Date: 20170114
  Receipt Date: 20170114
  Transmission Date: 20170428
  Serious: Yes (Other)
  Sender: FDA-Public Use
  Company Number: None

PATIENT
  Age: 36 Year
  Sex: Female
  Weight: 58.5 kg

DRUGS (6)
  1. ZYRTEC [Concomitant]
     Active Substance: CETIRIZINE HYDROCHLORIDE
  2. ADVIL COLD AND SINUS [Concomitant]
     Active Substance: IBUPROFEN\PSEUDOEPHEDRINE HYDROCHLORIDE
  3. CEPHALEXIN. [Suspect]
     Active Substance: CEPHALEXIN
     Indication: SINUSITIS
     Dosage: ?          QUANTITY:30 CAPSULE(S);?
     Route: 048
     Dates: start: 20170109, end: 20170110
  4. ARMOUR THYROID [Concomitant]
     Active Substance: THYROID, PORCINE
  5. ANTIBIOTICS [Concomitant]
     Active Substance: UNSPECIFIED INGREDIENT
  6. APRI BIRTH CONTROL [Concomitant]

REACTIONS (1)
  - Palpitations [None]

NARRATIVE: CASE EVENT DATE: 20170109
